FAERS Safety Report 10052935 (Version 2)
Quarter: 2014Q2

REPORT INFORMATION
  Report Type: Report from Study
  Country: US (occurrence: US)
  Receive Date: 20140402
  Receipt Date: 20140402
  Transmission Date: 20141212
  Serious: Yes (Other)
  Sender: FDA-Public Use
  Company Number: US-BRISTOL-MYERS SQUIBB COMPANY-19010362

PATIENT
  Age: 32 Year
  Sex: Female
  Weight: 63.49 kg

DRUGS (1)
  1. ABATACEPT SUBQ INJECTION 125MG/ML [Suspect]
     Indication: JUVENILE IDIOPATHIC ARTHRITIS
     Dosage: LAST INJ ON 05JUN2013. ?EXP DT: AUG 15?NDC:0003-2188-11
     Route: 058

REACTIONS (6)
  - Injury associated with device [Unknown]
  - Condition aggravated [Unknown]
  - Blister [Unknown]
  - Drug administration error [Unknown]
  - Fatigue [Unknown]
  - Weight increased [Unknown]
